FAERS Safety Report 6582484-6 (Version None)
Quarter: 2010Q1

REPORT INFORMATION
  Report Type: 
  Country: None (occurrence: None)
  Receive Date: 20100216
  Receipt Date: 20100205
  Transmission Date: 20100710
  Serious: Yes (Death, Hospitalization)
  Sender: FDA-Public Use
  Company Number: US-JNJFOC-20091102738

PATIENT
  Sex: Male
  Weight: 49.9 kg

DRUGS (1)
  1. REMICADE [Suspect]
     Indication: RHEUMATOID ARTHRITIS
     Route: 042
     Dates: start: 20020101, end: 20081216

REACTIONS (10)
  - ARTERIOSCLEROSIS CORONARY ARTERY [None]
  - CANDIDURIA [None]
  - FUNGAL TEST POSITIVE [None]
  - GRANULOMA [None]
  - GRANULOMATOUS LIVER DISEASE [None]
  - MYOCARDIAL INFARCTION [None]
  - PNEUMONIA [None]
  - PSEUDOMONAL BACTERAEMIA [None]
  - RESPIRATORY FAILURE [None]
  - RHEUMATOID ARTHRITIS [None]
